FAERS Safety Report 5216749-7 (Version None)
Quarter: 2007Q1

REPORT INFORMATION
  Report Type: 
  Country: None (occurrence: None)
  Receive Date: 20070118
  Receipt Date: 20070102
  Transmission Date: 20070707
  Serious: Yes (Hospitalization)
  Sender: FDA-Public Use
  Company Number: 2007BL000025

PATIENT
  Age: 86 Year
  Sex: Male

DRUGS (8)
  1. DEXAMETHASONE [Suspect]
     Indication: DRUG USE FOR UNKNOWN INDICATION
     Dosage: 2 MILLIGRAMS; ONCE A DAY
     Dates: start: 20060829, end: 20060831
  2. ASPIRIN [Suspect]
     Indication: PROPHYLAXIS
     Dosage: 75 MILLIGRAMS; ORAL
     Route: 048
     Dates: start: 20060817
  3. ENOXAPARIN SODIUM [Suspect]
     Indication: DRUG USE FOR UNKNOWN INDICATION
     Dosage: 60 MILLIGRAMS; TWICE A DAY; SUBCUTANEOUS
     Route: 058
     Dates: start: 20060816, end: 20060901
  4. CLOPIDOGREL [Suspect]
     Indication: PROPHYLAXIS
     Dosage: 75 MILLIGRAMS; ORAL
     Route: 048
     Dates: start: 20060817
  5. BISOPROLOL FUMARATE [Concomitant]
  6. FUROSEMIDE [Concomitant]
  7. ISOSORBIDE MONONITRATE [Concomitant]
  8. METRONIDAZOLE [Concomitant]

REACTIONS (1)
  - HAEMATURIA [None]
